FAERS Safety Report 26090604 (Version 1)
Quarter: 2025Q4

REPORT INFORMATION
  Report Type: Spontaneous
  Country: US (occurrence: US)
  Receive Date: 20251126
  Receipt Date: 20251126
  Transmission Date: 20260117
  Serious: Yes (Other)
  Sender: ORGANON
  Company Number: US-ORGANON-O2511USA001792

PATIENT
  Sex: Female

DRUGS (1)
  1. NEXPLANON [Suspect]
     Active Substance: ETONOGESTREL
     Indication: Contraception
     Dosage: 1 IMPLANT, 68 MG

REACTIONS (2)
  - Vaginal haemorrhage [Not Recovered/Not Resolved]
  - Coital bleeding [Recovered/Resolved]
